FAERS Safety Report 10211228 (Version 1)
Quarter: 2014Q2

REPORT INFORMATION
  Report Type: Spontaneous
  Country: US (occurrence: None)
  Receive Date: 20140530
  Receipt Date: 20140530
  Transmission Date: 20141212
  Serious: No
  Sender: FDA-Public Use
  Company Number: None

PATIENT
  Age: 66 Year
  Sex: Female
  Weight: 90.72 kg

DRUGS (15)
  1. CEPHALEXIN [Suspect]
     Indication: CELLULITIS
     Dosage: 1 CAPSULE
     Route: 048
  2. SULFAMETHOXAZOLE [Suspect]
     Indication: CELLULITIS
     Dosage: 1 PILL
     Route: 048
  3. BUPROPION [Concomitant]
  4. LOSARTAN [Concomitant]
  5. OMEPRAZOLE [Concomitant]
  6. PREMARIN [Concomitant]
  7. CITALOPRAM [Concomitant]
  8. TEMPORARY WALKER [Concomitant]
  9. B COMPLEX [Concomitant]
  10. COQ10 [Concomitant]
  11. D3 [Concomitant]
  12. FISH OIL [Concomitant]
  13. RED YEAST RICE [Concomitant]
  14. MIRALAX [Concomitant]
  15. CALCIUM [Concomitant]

REACTIONS (5)
  - Fluid retention [None]
  - Fatigue [None]
  - Hyperhidrosis [None]
  - Peripheral swelling [None]
  - Erythema [None]
